FAERS Safety Report 25685835 (Version 1)
Quarter: 2025Q3

REPORT INFORMATION
  Report Type: Spontaneous
  Country: US (occurrence: US)
  Receive Date: 20250815
  Receipt Date: 20250815
  Transmission Date: 20251020
  Serious: No
  Sender: MYLAN
  Company Number: US-MYLANLABS-2025M1067657

PATIENT
  Age: 47 Year
  Sex: Male

DRUGS (2)
  1. GEODON [Suspect]
     Active Substance: ZIPRASIDONE HYDROCHLORIDE\ZIPRASIDONE MESYLATE
     Indication: Bipolar II disorder
  2. INVEGA [Suspect]
     Active Substance: PALIPERIDONE
     Indication: Bipolar II disorder

REACTIONS (2)
  - Depression [Unknown]
  - Crying [Unknown]
